FAERS Safety Report 24576717 (Version 2)
Quarter: 2024Q4

REPORT INFORMATION
  Report Type: Spontaneous
  Country: FR (occurrence: FR)
  Receive Date: 20241104
  Receipt Date: 20241114
  Transmission Date: 20250114
  Serious: Yes (Other)
  Sender: PFIZER
  Company Number: None

PATIENT
  Age: 52 Year
  Sex: Female
  Weight: 76.4 kg

DRUGS (11)
  1. PIPERACILLIN SODIUM\TAZOBACTAM SODIUM [Suspect]
     Active Substance: PIPERACILLIN SODIUM\TAZOBACTAM SODIUM
     Indication: Septic shock
     Dosage: 4 G, 3X/DAY
     Route: 042
     Dates: start: 20241002, end: 20241010
  2. FILGRASTIM [Suspect]
     Active Substance: FILGRASTIM
     Indication: Neutropenia
     Dosage: 30 IU, DAILY
     Route: 058
     Dates: start: 20240927, end: 20241009
  3. CLINDAMYCIN PHOSPHATE [Suspect]
     Active Substance: CLINDAMYCIN PHOSPHATE
     Indication: Septic shock
     Dosage: 600 MG, 3X/DAY
     Route: 042
     Dates: start: 20241002, end: 20241010
  4. TRIMEBUTINE MALEATE [Suspect]
     Active Substance: TRIMEBUTINE MALEATE
     Indication: Abdominal pain
     Dosage: 50 MG, 3X/DAY
     Route: 042
     Dates: start: 20240917, end: 20241010
  5. AMBISOME [Suspect]
     Active Substance: AMPHOTERICIN B
     Indication: Candida infection
     Dosage: 250 MG EVERY 24 H
     Route: 042
     Dates: start: 20240918, end: 20240930
  6. AMBISOME [Suspect]
     Active Substance: AMPHOTERICIN B
     Dosage: 250 MG EVERY 24 H
     Route: 042
     Dates: start: 20241002, end: 20241007
  7. ONDANSETRON [Suspect]
     Active Substance: ONDANSETRON
     Indication: Abdominal pain
     Dosage: 8 MG EVERY 24 H
     Route: 042
     Dates: start: 20240912, end: 20241002
  8. NEFOPAM HYDROCHLORIDE [Concomitant]
     Active Substance: NEFOPAM HYDROCHLORIDE
     Indication: Abdominal pain
     Dosage: 60 MG EVERY 24 H
     Route: 042
     Dates: start: 20240917
  9. ACYCLOVIR [Concomitant]
     Active Substance: ACYCLOVIR
     Dosage: 250 MG EVERY 8 HOURS
     Route: 042
     Dates: start: 20240929
  10. VITAMIN K [Concomitant]
     Active Substance: PHYTONADIONE
     Dosage: 10 MG, WEEKLY
     Route: 042
     Dates: start: 20240917
  11. PANTOPRAZOLE [Concomitant]
     Active Substance: PANTOPRAZOLE
     Dosage: 40 MG, DAILY
     Route: 042
     Dates: start: 20240923

REACTIONS (1)
  - Proteinuria [Recovering/Resolving]

NARRATIVE: CASE EVENT DATE: 20241004
